FAERS Safety Report 5450701-1 (Version None)
Quarter: 2007Q3

REPORT INFORMATION
  Report Type: 
  Country: None (occurrence: None)
  Receive Date: 20070910
  Receipt Date: 20070904
  Transmission Date: 20080115
  Serious: Yes (Other)
  Sender: FDA-Public Use
  Company Number: CHPA2007US09354

PATIENT
  Age: 6 Year
  Sex: Male

DRUGS (1)
  1. TRIAMINIC SRT [Suspect]
     Indication: NASOPHARYNGITIS
     Dosage: 1 DF, ONCE/SINGLE, ORAL
     Route: 048

REACTIONS (1)
  - HALLUCINATION [None]
